FAERS Safety Report 18705056 (Version 1)
Quarter: 2021Q1

REPORT INFORMATION
  Report Type: Spontaneous
  Country: US (occurrence: US)
  Receive Date: 20210106
  Receipt Date: 20210106
  Transmission Date: 20210419
  Serious: Yes (Other)
  Sender: FDA-Public Use
  Company Number: US-ACCORD-213425

PATIENT
  Age: 73 Year
  Sex: Female

DRUGS (1)
  1. SERTRALINE [Suspect]
     Active Substance: SERTRALINE HYDROCHLORIDE
     Indication: ANXIETY

REACTIONS (4)
  - Hepatitis cholestatic [Recovered/Resolved]
  - Drug-induced liver injury [Recovered/Resolved]
  - Drug level increased [Recovered/Resolved]
  - Drug clearance decreased [Recovered/Resolved]
